FAERS Safety Report 9101366 (Version 1)
Quarter: 2013Q1

REPORT INFORMATION
  Report Type: Report from Study
  Country: US (occurrence: US)
  Receive Date: 20130218
  Receipt Date: 20130218
  Transmission Date: 20140127
  Serious: No
  Sender: FDA-Public Use
  Company Number: US-ABBOTT-12P-163-0989545-00

PATIENT
  Sex: Male
  Weight: 113.5 kg

DRUGS (3)
  1. SIMCOR [Suspect]
     Indication: BLOOD TEST ABNORMAL
     Dates: start: 201208
  2. ZOLOFT [Concomitant]
     Indication: PRODUCT USED FOR UNKNOWN INDICATION
     Route: 048
  3. TESTOSTERONE [Concomitant]
     Indication: PRODUCT USED FOR UNKNOWN INDICATION

REACTIONS (1)
  - Frequent bowel movements [Recovered/Resolved]
